FAERS Safety Report 18309584 (Version 4)
Quarter: 2021Q1

REPORT INFORMATION
  Report Type: Report from Study
  Country: US (occurrence: US)
  Receive Date: 20200925
  Receipt Date: 20210312
  Transmission Date: 20210419
  Serious: No
  Sender: FDA-Public Use
  Company Number: NVSC2020US258970

PATIENT
  Sex: Male

DRUGS (1)
  1. COSENTYX [Suspect]
     Active Substance: SECUKINUMAB
     Indication: PSORIASIS
     Dosage: 300 MG, OTHER (QW FOR 5 WEEKS AND THEN Q4)
     Route: 058
     Dates: start: 202003

REACTIONS (3)
  - Prostatomegaly [Unknown]
  - Pain [Unknown]
  - Psoriasis [Recovering/Resolving]
